FAERS Safety Report 11021495 (Version 1)
Quarter: 2015Q2

REPORT INFORMATION
  Report Type: Spontaneous
  Country: BR (occurrence: BR)
  Receive Date: 20150413
  Receipt Date: 20150413
  Transmission Date: 20150821
  Serious: Yes (Death)
  Sender: FDA-Public Use
  Company Number: BR-PFIZER INC-2014325907

PATIENT
  Age: 49 Year
  Sex: Male

DRUGS (1)
  1. SUTENT [Suspect]
     Active Substance: SUNITINIB MALATE
     Indication: RENAL CELL CARCINOMA
     Dosage: 50 MG, CYCLIC (4X2 CYCLE)
     Route: 048
     Dates: start: 20140828, end: 20141123

REACTIONS (5)
  - Death [Fatal]
  - Renal cell carcinoma [Unknown]
  - Disease progression [Unknown]
  - Oral disorder [Unknown]
  - Throat lesion [Unknown]

NARRATIVE: CASE EVENT DATE: 2014
